FAERS Safety Report 6531503-1 (Version None)
Quarter: 2010Q1

REPORT INFORMATION
  Report Type: 
  Country: None (occurrence: None)
  Receive Date: 20100108
  Receipt Date: 20100105
  Transmission Date: 20100710
  Serious: Yes (Death)
  Sender: FDA-Public Use
  Company Number: US-ASTRAZENECA-2010SE00507

PATIENT
  Age: 60 Year
  Sex: Female

DRUGS (8)
  1. LISINOPRIL [Suspect]
     Route: 048
  2. VALPROIC ACID [Suspect]
     Route: 048
  3. CLONAZEPAM [Suspect]
     Route: 048
  4. METFORMIN HCL [Suspect]
     Route: 048
  5. LOSARTAN [Suspect]
     Route: 048
  6. SIMVASTATIN [Suspect]
     Route: 048
  7. HALOPERIDOL [Suspect]
     Route: 048
  8. CALCIUM ANTAGONIST [Suspect]
     Route: 048

REACTIONS (2)
  - COMPLETED SUICIDE [None]
  - DRUG TOXICITY [None]
